FAERS Safety Report 15940641 (Version 2)
Quarter: 2019Q2

REPORT INFORMATION
  Report Type: Spontaneous
  Country: US (occurrence: US)
  Receive Date: 20190208
  Receipt Date: 20190415
  Transmission Date: 20190711
  Serious: Yes (Other)
  Sender: FDA-Public Use
  Company Number: US-ASTRAZENECA-2018SF33703

PATIENT
  Sex: Female
  Weight: 111.6 kg

DRUGS (37)
  1. VIOXX [Concomitant]
     Active Substance: ROFECOXIB
  2. AMBIEN [Concomitant]
     Active Substance: ZOLPIDEM TARTRATE
  3. ADVAIR HFA [Concomitant]
     Active Substance: FLUTICASONE PROPIONATE\SALMETEROL XINAFOATE
  4. NEXIUM [Suspect]
     Active Substance: ESOMEPRAZOLE MAGNESIUM
     Indication: GASTROOESOPHAGEAL REFLUX DISEASE
     Route: 048
  5. PROTONIX [Suspect]
     Active Substance: PANTOPRAZOLE SODIUM
     Indication: GASTROOESOPHAGEAL REFLUX DISEASE
     Route: 065
  6. ALPRAZOLAM. [Concomitant]
     Active Substance: ALPRAZOLAM
  7. PRILOSEC OTC [Suspect]
     Active Substance: OMEPRAZOLE MAGNESIUM
     Route: 048
  8. CIPRO [Concomitant]
     Active Substance: CIPROFLOXACIN HYDROCHLORIDE
  9. CEPHALEXIN. [Concomitant]
     Active Substance: CEPHALEXIN
  10. MELOXICAM. [Concomitant]
     Active Substance: MELOXICAM
  11. GABAPENTIN. [Concomitant]
     Active Substance: GABAPENTIN
  12. SUCRALFATE. [Concomitant]
     Active Substance: SUCRALFATE
  13. NEXIUM [Suspect]
     Active Substance: ESOMEPRAZOLE MAGNESIUM
     Indication: GASTROOESOPHAGEAL REFLUX DISEASE
     Route: 048
     Dates: start: 20120601
  14. PROTONIX [Suspect]
     Active Substance: PANTOPRAZOLE SODIUM
     Indication: GASTROOESOPHAGEAL REFLUX DISEASE
     Dosage: GENERIC
     Route: 065
     Dates: start: 20150127, end: 20160420
  15. PREDNISONE. [Concomitant]
     Active Substance: PREDNISONE
  16. PRILOSEC [Suspect]
     Active Substance: OMEPRAZOLE MAGNESIUM
     Route: 048
  17. PROTONIX [Suspect]
     Active Substance: PANTOPRAZOLE SODIUM
     Indication: GASTROOESOPHAGEAL REFLUX DISEASE
     Route: 048
     Dates: start: 20150204
  18. METRONIDAZOLE. [Concomitant]
     Active Substance: METRONIDAZOLE
  19. PREDNISONE. [Concomitant]
     Active Substance: PREDNISONE
  20. AMOXICILLIN. [Concomitant]
     Active Substance: AMOXICILLIN
  21. CALCITRIOL. [Concomitant]
     Active Substance: CALCITRIOL
  22. NEXIUM 24HR [Suspect]
     Active Substance: ESOMEPRAZOLE MAGNESIUM
     Route: 048
  23. PROTONIX [Suspect]
     Active Substance: PANTOPRAZOLE SODIUM
     Indication: GASTROOESOPHAGEAL REFLUX DISEASE
     Route: 065
  24. GENTAK [Concomitant]
     Active Substance: GENTAMICIN SULFATE
  25. FAMOTIDINE. [Concomitant]
     Active Substance: FAMOTIDINE
  26. GABAPENTIN. [Concomitant]
     Active Substance: GABAPENTIN
  27. ROCALTROL [Concomitant]
     Active Substance: CALCITRIOL
  28. LASIX [Concomitant]
     Active Substance: FUROSEMIDE
  29. DIAZEPAM. [Concomitant]
     Active Substance: DIAZEPAM
  30. VITAMIN D2 [Concomitant]
     Active Substance: ERGOCALCIFEROL
  31. XOPENEX [Concomitant]
     Active Substance: LEVALBUTEROL HYDROCHLORIDE
  32. BENZONATATE. [Concomitant]
     Active Substance: BENZONATATE
  33. PROTONIX [Suspect]
     Active Substance: PANTOPRAZOLE SODIUM
     Indication: GASTROOESOPHAGEAL REFLUX DISEASE
     Route: 065
  34. FLUMADINE [Concomitant]
     Active Substance: RIMANTADINE HYDROCHLORIDE
  35. SKELAXIN [Concomitant]
     Active Substance: METAXALONE
  36. PROCTOFOAM [Concomitant]
     Active Substance: PRAMOXINE HYDROCHLORIDE
  37. FUROSEMIDE. [Concomitant]
     Active Substance: FUROSEMIDE

REACTIONS (1)
  - Chronic kidney disease [Not Recovered/Not Resolved]
